FAERS Safety Report 8439001 (Version 2)
Quarter: 2013Q2

REPORT INFORMATION
  Report Type: Spontaneous
  Country: US (occurrence: None)
  Receive Date: 20120104
  Receipt Date: 20120508
  Transmission Date: 20140414
  Serious: No
  Sender: FDA-Public Use
  Company Number: 2011HGS-002858

PATIENT
  Age: 58 Year
  Sex: Female
  Weight: 80.74 kg

DRUGS (17)
  1. BENLYSTA [Suspect]
     Indication: SYSTEMIC LUPUS ERYTHEMATOSUS
     Dosage: 1 IN 28 D, INTRAVENOUS DRIP
     Route: 041
     Dates: start: 20111025
  2. PLAQUENIL (HYDROXYCHLOROQUINE SULFATE)(HYDROXYCHLOROQUINE SULFATE) [Concomitant]
  3. PRAVASTATIN [Concomitant]
  4. CELEBREX [Concomitant]
  5. PREVACID (LANSOPRAZOLE) (LANSOPRAZOLE) [Concomitant]
  6. DIAZIDE (GLICLAZIDE) (GLICLAZIDE) [Concomitant]
  7. AMLODIPINE [Concomitant]
  8. DIAZEPAM [Concomitant]
  9. POTASSIUM (POTASSIUM)(POTASSIUM) [Concomitant]
  10. CALCIUM (CALCIUM) (CALCIUM) [Concomitant]
  11. LUMIGAN (BIMATOPROST) (BIMATOPROST) [Concomitant]
  12. SINGULAIR [Concomitant]
  13. ALLEGRA (FEXOFENADINE HYDROCHLORIDE) (FEXOFENADINE HYDROCHLORIDE) [Concomitant]
  14. VITAMIN D (ERGOCALCIFEROL) (ERGOCALCIFEROL) [Concomitant]
  15. FOLIC ACID [Concomitant]
  16. DULERA (DULERA) (FORMOTEROL FUMARATE, MOMETASONE FUROATE) [Concomitant]
  17. XOLAIR (OMALIZUMAB) (OMALIZUMAB) [Concomitant]

REACTIONS (5)
  - NASOPHARYNGITIS [None]
  - COUGH [None]
  - Bronchitis [None]
  - Sinusitis [None]
  - Nasal congestion [None]
